FAERS Safety Report 7340719-6 (Version None)
Quarter: 2011Q1

REPORT INFORMATION
  Report Type: 
  Country: None (occurrence: None)
  Receive Date: 20110309
  Receipt Date: 20110210
  Transmission Date: 20110831
  Serious: No
  Sender: FDA-Public Use
  Company Number: US-B.I. PHARMACEUTICALS,INC./RIDGEFIELD-2011-BP-05303BP

PATIENT
  Age: 84 Year
  Sex: Female

DRUGS (7)
  1. NIACIN [Concomitant]
     Indication: BLOOD CHOLESTEROL
     Dosage: 1000 MG
     Route: 048
  2. DOCUSATE [Concomitant]
     Indication: LAXATIVE SUPPORTIVE CARE
     Dosage: 200 MG
     Route: 048
  3. ASA [Concomitant]
     Indication: CARDIAC DISORDER
     Dosage: 81 MG
     Route: 048
  4. PRADAXA [Suspect]
     Indication: ATRIAL FIBRILLATION
     Dosage: 300 MG
     Route: 048
     Dates: start: 20110119
  5. METOPROLOL [Concomitant]
     Indication: BLOOD PRESSURE INCREASED
     Dosage: 50 MG
     Route: 048
  6. LOVASTATIN [Concomitant]
     Indication: BLOOD CHOLESTEROL
     Dosage: 80 MG
     Route: 048
  7. FERROUS SUL TAB [Concomitant]
     Indication: BLOOD DISORDER
     Dosage: 325 MG
     Route: 048

REACTIONS (2)
  - PAIN IN EXTREMITY [None]
  - MUSCLE SPASMS [None]
